FAERS Safety Report 13902974 (Version 1)
Quarter: 2017Q3

REPORT INFORMATION
  Report Type: Spontaneous
  Country: DE (occurrence: DE)
  Receive Date: 20170824
  Receipt Date: 20170824
  Transmission Date: 20171127
  Serious: Yes (Other)
  Sender: FDA-Public Use
  Company Number: DE-TEVA-798142GER

PATIENT
  Age: 36 Year
  Sex: Male
  Weight: 72 kg

DRUGS (1)
  1. DOXYCYCLIN 100 MG [Suspect]
     Active Substance: DOXYCYCLINE
     Indication: SYPHILIS
     Dosage: 200 MILLIGRAM DAILY;
     Route: 048
     Dates: start: 2017

REACTIONS (4)
  - Laryngeal oedema [Unknown]
  - Dysphagia [Unknown]
  - Odynophagia [Unknown]
  - Nasal inflammation [Unknown]

NARRATIVE: CASE EVENT DATE: 2017
